FAERS Safety Report 13412145 (Version 3)
Quarter: 2025Q4

REPORT INFORMATION
  Report Type: Spontaneous
  Country: US (occurrence: US)
  Receive Date: 20170406
  Receipt Date: 20251223
  Transmission Date: 20260117
  Serious: No
  Sender: JOHNSON AND JOHNSON
  Company Number: US-JNJFOC-20170314126

PATIENT
  Age: 18 Year
  Sex: Male

DRUGS (4)
  1. RISPERDAL [Suspect]
     Active Substance: RISPERIDONE
     Indication: Attention deficit hyperactivity disorder
     Route: 048
     Dates: start: 20060617, end: 20070124
  2. RISPERDAL [Suspect]
     Active Substance: RISPERIDONE
     Indication: Oppositional defiant disorder
     Route: 048
     Dates: start: 20060811, end: 20061025
  3. RISPERDAL [Suspect]
     Active Substance: RISPERIDONE
     Indication: Schizoaffective disorder
     Route: 048
     Dates: start: 20060828, end: 20070402
  4. RISPERDAL [Suspect]
     Active Substance: RISPERIDONE
     Route: 048
     Dates: start: 20061213, end: 20070218

REACTIONS (2)
  - Gynaecomastia [Unknown]
  - Emotional disorder [Unknown]
